FAERS Safety Report 9916681 (Version 1)
Quarter: 2014Q1

REPORT INFORMATION
  Report Type: Spontaneous
  Country: GB (occurrence: GB)
  Receive Date: 20140221
  Receipt Date: 20140221
  Transmission Date: 20141002
  Serious: Yes (Other)
  Sender: FDA-Public Use
  Company Number: GB-ABBVIE-14P-167-1204112-00

PATIENT
  Sex: 0

DRUGS (2)
  1. CREON [Suspect]
     Indication: PRODUCT USED FOR UNKNOWN INDICATION
  2. ALL OTHER THERAPEUTIC PRODUCTS [Concomitant]
     Indication: PRODUCT USED FOR UNKNOWN INDICATION

REACTIONS (2)
  - Gastrointestinal ulcer [Unknown]
  - Gastrointestinal haemorrhage [Unknown]
